FAERS Safety Report 6333068-6 (Version None)
Quarter: 2009Q3

REPORT INFORMATION
  Report Type: 
  Country: None (occurrence: None)
  Receive Date: 20090828
  Receipt Date: 20090824
  Transmission Date: 20100115
  Serious: Yes (Other)
  Sender: FDA-Public Use
  Company Number: JP-ROXANE LABORATORIES, INC.-2009-RO-00862RO

PATIENT
  Age: 77 Year
  Sex: Female

DRUGS (6)
  1. METHOTREXATE [Suspect]
     Indication: RHEUMATOID ARTHRITIS
     Route: 048
  2. ISONIAZID [Concomitant]
     Indication: MENINGITIS TUBERCULOUS
  3. RIFAMPICIN [Concomitant]
     Indication: MENINGITIS TUBERCULOUS
  4. ETHAMBUTOL [Concomitant]
     Indication: MENINGITIS TUBERCULOUS
  5. PYRAZINAMIDE [Concomitant]
     Indication: MENINGITIS TUBERCULOUS
  6. DEXAMETHASONE [Concomitant]
     Indication: MENINGITIS TUBERCULOUS

REACTIONS (2)
  - EPSTEIN-BARR VIRUS ASSOCIATED LYMPHOPROLIFERATIVE DISORDER [None]
  - MENINGITIS TUBERCULOUS [None]
